FAERS Safety Report 9016823 (Version 1)
Quarter: 2013Q1

REPORT INFORMATION
  Report Type: Spontaneous
  Country: GR (occurrence: GR)
  Receive Date: 20130117
  Receipt Date: 20130117
  Transmission Date: 20140127
  Serious: Yes (Other)
  Sender: FDA-Public Use
  Company Number: GR-JNJFOC-20130105442

PATIENT
  Sex: 0

DRUGS (1)
  1. REMICADE [Suspect]
     Indication: RHEUMATOID ARTHRITIS
     Route: 042

REACTIONS (5)
  - Neoplasm malignant [Unknown]
  - Drug effect decreased [Unknown]
  - Infusion related reaction [Unknown]
  - Adverse event [Unknown]
  - Infection [Unknown]
